FAERS Safety Report 8020771-5 (Version None)
Quarter: 2012Q1

REPORT INFORMATION
  Report Type: 
  Country: None (occurrence: None)
  Receive Date: 20120104
  Receipt Date: 20111223
  Transmission Date: 20120608
  Serious: No
  Sender: FDA-Public Use
  Company Number: US-BIOGENIDEC-2011BI005646

PATIENT
  Sex: Female

DRUGS (2)
  1. AVONEX [Concomitant]
     Indication: MULTIPLE SCLEROSIS
     Route: 030
     Dates: start: 19961001
  2. TYSABRI [Suspect]
     Indication: MULTIPLE SCLEROSIS
     Route: 042
     Dates: start: 20091203

REACTIONS (9)
  - SOMNOLENCE [None]
  - MIGRAINE [None]
  - VERTIGO [None]
  - FATIGUE [None]
  - ASTHENIA [None]
  - HEMIPARESIS [None]
  - WEIGHT LOSS POOR [None]
  - CONFUSIONAL STATE [None]
  - MALAISE [None]
